FAERS Safety Report 6231864-7 (Version None)
Quarter: 2009Q2

REPORT INFORMATION
  Report Type: 
  Country: None (occurrence: None)
  Receive Date: 20090612
  Receipt Date: 20090612
  Transmission Date: 20091009
  Serious: No
  Sender: FDA-Public Use
  Company Number: None

PATIENT
  Age: 41 Year
  Sex: Female
  Weight: 77.1115 kg

DRUGS (1)
  1. PHENERGAN [Suspect]
     Indication: PROCEDURAL NAUSEA
     Dosage: ? 2?
     Dates: start: 20090504, end: 20090505

REACTIONS (4)
  - INJECTION SITE IRRITATION [None]
  - INJECTION SITE PAIN [None]
  - PAIN IN EXTREMITY [None]
  - VEIN DISORDER [None]
